FAERS Safety Report 14679192 (Version 2)
Quarter: 2018Q4

REPORT INFORMATION
  Report Type: Spontaneous
  Country: US (occurrence: US)
  Receive Date: 20180326
  Receipt Date: 20181123
  Transmission Date: 20190204
  Serious: Yes (Other)
  Sender: FDA-Public Use
  Company Number: US-PFIZER INC-2018120424

PATIENT
  Age: 52 Year
  Sex: Male

DRUGS (3)
  1. AZATHIOPRINE. [Suspect]
     Active Substance: AZATHIOPRINE
     Dosage: 100 MG, DAILY
  2. AZATHIOPRINE. [Suspect]
     Active Substance: AZATHIOPRINE
     Dosage: 100 MG, DAILY
  3. XELJANZ XR [Suspect]
     Active Substance: TOFACITINIB CITRATE
     Dosage: 11 MG, DAILY

REACTIONS (12)
  - Arthralgia [Not Recovered/Not Resolved]
  - Pain in extremity [Not Recovered/Not Resolved]
  - Nodule [Unknown]
  - Discomfort [Unknown]
  - Product use issue [Unknown]
  - Root canal infection [Unknown]
  - Hypoaesthesia [Recovering/Resolving]
  - Nephrolithiasis [Recovered/Resolved]
  - Upper respiratory tract infection [Unknown]
  - Facial paralysis [Recovering/Resolving]
  - Paraesthesia [Recovering/Resolving]
  - Musculoskeletal stiffness [Unknown]
